FAERS Safety Report 4677373-8 (Version None)
Quarter: 2005Q2

REPORT INFORMATION
  Report Type: 
  Country: None (occurrence: None)
  Receive Date: 20050526
  Receipt Date: 20050526
  Transmission Date: 20051028
  Serious: No
  Sender: FDA-Public Use
  Company Number: None

PATIENT
  Age: 76 Year
  Sex: Female
  Weight: 65.7716 kg

DRUGS (1)
  1. CATAPRES [Suspect]
     Indication: HYPOTENSION
     Dosage: 0.2 MG TWICE DAILY

REACTIONS (10)
  - ARRHYTHMIA [None]
  - ASTHENIA [None]
  - CONSTIPATION [None]
  - DIZZINESS [None]
  - DRY MOUTH [None]
  - MYALGIA [None]
  - NAUSEA [None]
  - PRURITUS [None]
  - RASH [None]
  - SOMNOLENCE [None]
